FAERS Safety Report 16190566 (Version 1)
Quarter: 2019Q2

REPORT INFORMATION
  Report Type: Spontaneous
  Country: US (occurrence: US)
  Receive Date: 20190311
  Receipt Date: 20190311
  Transmission Date: 20190711
  Serious: Yes (Other)
  Sender: FDA-Public Use
  Company Number: None

PATIENT
  Age: 31 Year
  Sex: Male

DRUGS (1)
  1. BUPORPHINE 8MG/NALOXONE 2MG [Suspect]
     Active Substance: BUPRENORPHINE\NALOXONE
     Indication: DRUG USE DISORDER
     Route: 060
     Dates: start: 20190302, end: 20190311

REACTIONS (3)
  - Withdrawal syndrome [None]
  - Self-medication [None]
  - Drug ineffective [None]

NARRATIVE: CASE EVENT DATE: 20190307
